FAERS Safety Report 10347154 (Version 1)
Quarter: 2014Q3

REPORT INFORMATION
  Report Type: Spontaneous
  Country: US (occurrence: US)
  Receive Date: 20140729
  Receipt Date: 20140729
  Transmission Date: 20150326
  Serious: Yes (Other)
  Sender: FDA-Public Use
  Company Number: US-PFIZER INC-2014211497

PATIENT
  Sex: Male

DRUGS (1)
  1. NICOTROL [Suspect]
     Active Substance: NICOTINE
     Dosage: UNK

REACTIONS (4)
  - Lung neoplasm malignant [Unknown]
  - Lung disorder [Unknown]
  - Respiratory fume inhalation disorder [Unknown]
  - Tremor [Unknown]

NARRATIVE: CASE EVENT DATE: 2014
